FAERS Safety Report 4324678-6 (Version None)
Quarter: 2004Q1

REPORT INFORMATION
  Report Type: 
  Country: None (occurrence: None)
  Receive Date: 20040323
  Receipt Date: 20040316
  Transmission Date: 20041129
  Serious: Yes (Hospitalization)
  Sender: FDA-Public Use
  Company Number: FRWYE644016MAR04

PATIENT
  Age: 17 Year
  Sex: Male

DRUGS (2)
  1. MYNOCINE (MINOCYCLINE, CAPSULE) [Suspect]
     Indication: ACNE
     Dosage: 3 CAPSULE 1X PER 1 DAY, ORAL
     Route: 048
     Dates: end: 19951113
  2. ISOTRETINOIN [Suspect]
     Indication: ACNE
     Dosage: 35 MG 1X PER 1 DAY, ORAL
     Route: 048
     Dates: start: 19931113, end: 19940530

REACTIONS (4)
  - ASTHENIA [None]
  - C-REACTIVE PROTEIN INCREASED [None]
  - MUSCLE CRAMP [None]
  - MYALGIA [None]
